FAERS Safety Report 5503577-8 (Version None)
Quarter: 2007Q4

REPORT INFORMATION
  Report Type: 
  Country: None (occurrence: None)
  Receive Date: 20071029
  Receipt Date: 20071019
  Transmission Date: 20080405
  Serious: Yes (Hospitalization)
  Sender: FDA-Public Use
  Company Number: 2007SP018214

PATIENT
  Age: 59 Year
  Sex: Female

DRUGS (7)
  1. TEMODAL [Suspect]
     Indication: METASTASES TO CENTRAL NERVOUS SYSTEM
     Dosage: 120 MG; QD; PO
     Route: 048
     Dates: start: 20070827, end: 20070906
  2. DEANXIT [Concomitant]
  3. FORTECORTIN [Concomitant]
  4. NEXIUM [Concomitant]
  5. DALMADORM [Concomitant]
  6. ZESTRIL [Concomitant]
  7. MORPHINE SULFATE [Concomitant]

REACTIONS (1)
  - PNEUMONIA [None]
